FAERS Safety Report 5229122-2 (Version None)
Quarter: 2007Q1

REPORT INFORMATION
  Report Type: 
  Country: None (occurrence: None)
  Receive Date: 20061201
  Receipt Date: 20060818
  Transmission Date: 20070707
  Serious: No
  Sender: FDA-Public Use
  Company Number: US200608004238

PATIENT
  Age: 51 Year
  Sex: Female

DRUGS (4)
  1. CYMBALTA [Suspect]
     Indication: DEPRESSION
     Dosage: 60 MG
     Dates: start: 20060801
  2. WELLBUTRIN [Concomitant]
  3. ESTRACE [Concomitant]
  4. REQUIP [Concomitant]

REACTIONS (3)
  - CRYING [None]
  - INSOMNIA [None]
  - VISION BLURRED [None]
